FAERS Safety Report 25321689 (Version 1)
Quarter: 2025Q2

REPORT INFORMATION
  Report Type: Spontaneous
  Country: US (occurrence: US)
  Receive Date: 20250516
  Receipt Date: 20250516
  Transmission Date: 20250716
  Serious: No
  Sender: STALLERGENES
  Company Number: US-STALCOR-2025-AER-00758

PATIENT
  Age: 5 Year
  Sex: Male

DRUGS (3)
  1. PALFORZIA [Suspect]
     Active Substance: PEANUT
     Indication: Food allergy
     Dosage: REACTIVE DOSE LEVEL 9 AT 200MG
     Route: 048
     Dates: start: 202502
  2. PALFORZIA [Suspect]
     Active Substance: PEANUT
     Dosage: DOSE REDUCED TO LEVEL 7 AT 120MG IN RESPONSE TO REPORTED AE^S- SCHEDULED TO BE DISPENSED ON 07-MAR-2
     Route: 048
     Dates: start: 202503
  3. EPINEPHRINE [Concomitant]
     Active Substance: EPINEPHRINE
     Indication: Product used for unknown indication

REACTIONS (4)
  - Urticaria [Unknown]
  - Dyspnoea [Unknown]
  - Nausea [Unknown]
  - Vomiting [Unknown]

NARRATIVE: CASE EVENT DATE: 20250302
